FAERS Safety Report 11157692 (Version 2)
Quarter: 2015Q2

REPORT INFORMATION
  Report Type: Spontaneous
  Country: FR (occurrence: FR)
  Receive Date: 20150603
  Receipt Date: 20150610
  Transmission Date: 20150821
  Serious: Yes (Hospitalization)
  Sender: FDA-Public Use
  Company Number: FR-009507513-1506FRA000134

PATIENT
  Age: 36 Year
  Sex: Female

DRUGS (4)
  1. GARDENAL [Suspect]
     Active Substance: PHENOBARBITAL
     Dosage: 150 MG QD
     Route: 048
  2. EPITOMAX [Suspect]
     Active Substance: TOPIRAMATE
     Dosage: 150 MG QD
     Route: 048
  3. URBANYL [Suspect]
     Active Substance: CLOBAZAM
     Dosage: 10 MG, UNK
  4. NORSET [Suspect]
     Active Substance: MIRTAZAPINE
     Dosage: 30MG (15 MG BID)
     Route: 048
     Dates: start: 20150319, end: 20150407

REACTIONS (1)
  - Coma [Recovered/Resolved]

NARRATIVE: CASE EVENT DATE: 20150403
